FAERS Safety Report 4280229-6 (Version None)
Quarter: 2004Q1

REPORT INFORMATION
  Report Type: 
  Country: None (occurrence: None)
  Receive Date: 20040126
  Receipt Date: 20040108
  Transmission Date: 20041129
  Serious: Yes (Hospitalization)
  Sender: FDA-Public Use
  Company Number: 165744

PATIENT
  Sex: Male

DRUGS (5)
  1. AVONEX [Suspect]
     Indication: MULTIPLE SCLEROSIS
     Dosage: 30 MCG QW IM
     Route: 030
     Dates: start: 20010519
  2. REMERON [Concomitant]
  3. PROZAC [Concomitant]
  4. ZANAFLEX [Concomitant]
  5. MULTI-VITAMINS [Concomitant]

REACTIONS (7)
  - CHEST PAIN [None]
  - ELECTROCARDIOGRAM ABNORMAL [None]
  - HEART RATE IRREGULAR [None]
  - INFLUENZA LIKE ILLNESS [None]
  - SYNCOPE [None]
  - TREMOR [None]
  - WOLFF-PARKINSON-WHITE SYNDROME [None]
